FAERS Safety Report 4502560-9 (Version None)
Quarter: 2004Q4

REPORT INFORMATION
  Report Type: 
  Country: None (occurrence: None)
  Receive Date: 20041112
  Receipt Date: 20041103
  Transmission Date: 20050328
  Serious: Yes (Other)
  Sender: FDA-Public Use
  Company Number: HQWYE245004NOV04

PATIENT
  Age: 16 Year
  Sex: Female
  Weight: 59.02 kg

DRUGS (1)
  1. NORPLANT SYSTEM [Suspect]
     Indication: CONTRACEPTION
     Dosage: 5 CAPSULES, SUBCUTANEOUS
     Route: 059
     Dates: start: 19930101

REACTIONS (12)
  - ALOPECIA [None]
  - AMENORRHOEA [None]
  - APPLICATION SITE ANAESTHESIA [None]
  - APPLICATION SITE BRUISING [None]
  - APPLICATION SITE PAIN [None]
  - APPLICATION SITE PARAESTHESIA [None]
  - CONVULSION [None]
  - DEPRESSION [None]
  - LIBIDO DECREASED [None]
  - MENSTRUAL DISORDER [None]
  - MENSTRUATION IRREGULAR [None]
  - WEIGHT INCREASED [None]
